FAERS Safety Report 5377586-6 (Version None)
Quarter: 2007Q3

REPORT INFORMATION
  Report Type: 
  Country: None (occurrence: None)
  Receive Date: 20070703
  Receipt Date: 20070622
  Transmission Date: 20080115
  Serious: Yes (Hospitalization)
  Sender: FDA-Public Use
  Company Number: CA-SHR-CA-2007-023564

PATIENT
  Age: 65 Year
  Sex: Female

DRUGS (2)
  1. BETASERON [Suspect]
     Indication: RELAPSING-REMITTING MULTIPLE SCLEROSIS
     Dosage: 9.6 MIU, EVERY 2D
     Route: 058
     Dates: start: 20070522, end: 20070601
  2. BETASERON [Suspect]
     Dosage: 4.8 MIU, EVERY 2D
     Route: 058
     Dates: start: 20070601, end: 20070619

REACTIONS (2)
  - MOBILITY DECREASED [None]
  - MUSCULAR WEAKNESS [None]
